FAERS Safety Report 12704578 (Version 1)
Quarter: 2016Q3

REPORT INFORMATION
  Report Type: Spontaneous
  Country: US (occurrence: US)
  Receive Date: 20160831
  Receipt Date: 20160831
  Transmission Date: 20161109
  Serious: No
  Sender: FDA-Public Use
  Company Number: US-SA-2016SA136478

PATIENT
  Age: 74 Year
  Sex: Female

DRUGS (2)
  1. CORGARD [Concomitant]
     Active Substance: NADOLOL
  2. AVAPRO [Suspect]
     Active Substance: IRBESARTAN
     Route: 065

REACTIONS (1)
  - Malaise [Unknown]
